FAERS Safety Report 9663564 (Version 1)
Quarter: 2013Q4

REPORT INFORMATION
  Report Type: Spontaneous
  Country: US (occurrence: US)
  Receive Date: 20131101
  Receipt Date: 20131101
  Transmission Date: 20140711
  Serious: Yes (Death, Other)
  Sender: FDA-Public Use
  Company Number: US-ENDO PHARMACEUTICALS INC.-CLOZ20130008

PATIENT
  Age: 35 Year
  Sex: Male
  Weight: 96.57 kg

DRUGS (6)
  1. CLONAZEPAM 0.5MG [Suspect]
     Indication: DRUG DIVERSION
     Dosage: UNKNOWN
     Route: 048
     Dates: start: 20121109, end: 20121110
  2. DIPHENHYDRAMINE [Suspect]
     Indication: PRODUCT USED FOR UNKNOWN INDICATION
     Dosage: UNKNOWN
     Route: 048
     Dates: start: 20121109, end: 20121110
  3. ALCOHOL [Suspect]
     Indication: ALCOHOL ABUSE
     Dosage: N/A
     Dates: start: 20121109, end: 20121110
  4. COCAINE [Suspect]
     Indication: SUBSTANCE ABUSE
     Dosage: N/A
  5. METHAMPHETAMINE [Suspect]
     Indication: SUBSTANCE ABUSE
     Dosage: N/A
  6. AMPHETAMINE [Suspect]
     Indication: SUBSTANCE ABUSE
     Dosage: N/A

REACTIONS (7)
  - Completed suicide [Fatal]
  - Intentional overdose [Not Recovered/Not Resolved]
  - Potentiating drug interaction [Not Recovered/Not Resolved]
  - Drug abuse [Not Recovered/Not Resolved]
  - Depression [Not Recovered/Not Resolved]
  - Fall [Recovered/Resolved]
  - Road traffic accident [Recovered/Resolved]
